FAERS Safety Report 23476171 (Version 1)
Quarter: 2024Q1

REPORT INFORMATION
  Report Type: Report from Study
  Country: US (occurrence: US)
  Receive Date: 20240204
  Receipt Date: 20240204
  Transmission Date: 20240410
  Serious: No
  Sender: FDA-Public Use
  Company Number: US-EXELIXIS-CABO-23062170

PATIENT
  Age: 85 Year
  Sex: Female

DRUGS (22)
  1. CABOMETYX [Suspect]
     Active Substance: CABOZANTINIB S-MALATE
     Indication: Renal cancer
     Dosage: 40 MG, QD
     Route: 048
     Dates: start: 20230316
  2. CABOMETYX [Suspect]
     Active Substance: CABOZANTINIB S-MALATE
     Dosage: 40 MG, QD
     Route: 048
  3. OPDIVO [Concomitant]
     Active Substance: NIVOLUMAB
  4. TRAMADOL HCL [Concomitant]
     Active Substance: TRAMADOL HYDROCHLORIDE
  5. AZELASTINE [Concomitant]
     Active Substance: AZELASTINE\AZELASTINE HYDROCHLORIDE
  6. BUDESONIDE [Concomitant]
     Active Substance: BUDESONIDE
  7. VITAMINS [Concomitant]
     Active Substance: VITAMINS
  8. LISINOPRIL [Concomitant]
     Active Substance: LISINOPRIL
  9. OXYBUTYNIN [Concomitant]
     Active Substance: OXYBUTYNIN\OXYBUTYNIN CHLORIDE
  10. POTASSIUM CHLORIDE [Concomitant]
     Active Substance: POTASSIUM CHLORIDE
  11. TIZANIDINE [Concomitant]
     Active Substance: TIZANIDINE
  12. TYLENOL [Concomitant]
     Active Substance: ACETAMINOPHEN
  13. VITAMIN C [Concomitant]
     Active Substance: ASCORBIC ACID
  14. VITAMIN D [Concomitant]
     Active Substance: VITAMIN D NOS
  15. Buterol [Concomitant]
  16. CALCIUM [Concomitant]
     Active Substance: CALCIUM
  17. EXCEDRIN [Concomitant]
     Active Substance: ACETAMINOPHEN\ASPIRIN\CAFFEINE
  18. FLUTICASONE [Concomitant]
     Active Substance: FLUTICASONE
  19. VITAMINS [Concomitant]
     Active Substance: VITAMINS
  20. MINERALS\VITAMINS [Concomitant]
     Active Substance: MINERALS\VITAMINS
  21. VITAMIN B12 [Concomitant]
     Active Substance: CYANOCOBALAMIN
  22. ALBUTEROL SULFATE [Concomitant]
     Active Substance: ALBUTEROL SULFATE

REACTIONS (8)
  - Iris discolouration [Not Recovered/Not Resolved]
  - Vision blurred [Not Recovered/Not Resolved]
  - Eyelid ptosis [Not Recovered/Not Resolved]
  - Pain [Not Recovered/Not Resolved]
  - Fatigue [Not Recovered/Not Resolved]
  - Metastatic renal cell carcinoma [Not Recovered/Not Resolved]
  - Metastases to lung [Not Recovered/Not Resolved]
  - Product dose omission issue [Unknown]

NARRATIVE: CASE EVENT DATE: 20230301
